FAERS Safety Report 8008852-3 (Version None)
Quarter: 2011Q4

REPORT INFORMATION
  Report Type: 
  Country: None (occurrence: None)
  Receive Date: 20111227
  Receipt Date: 20111208
  Transmission Date: 20120403
  Serious: Yes (Hospitalization)
  Sender: FDA-Public Use
  Company Number: PHHY2011US45948

PATIENT
  Sex: Female

DRUGS (8)
  1. EXELON [Suspect]
     Dosage: 9.5 MG, 1 PATCH PER DAY
     Route: 062
  2. MIRTAZAPINE [Suspect]
     Dosage: 15 MG, QD
  3. EXELON [Suspect]
  4. EXELON [Suspect]
  5. LIVALO KOWA [Concomitant]
     Indication: BLOOD CHOLESTEROL
  6. PREDNISONE TAB [Concomitant]
     Indication: ARTHRITIS
     Dosage: 4 MG, UNK
  7. REMERON [Concomitant]
  8. VITAMIN D [Concomitant]
     Dosage: UNK UKN, UNK

REACTIONS (8)
  - HEADACHE [None]
  - MEMORY IMPAIRMENT [None]
  - VOMITING [None]
  - APPLICATION SITE ERYTHEMA [None]
  - MALAISE [None]
  - DIARRHOEA [None]
  - ATRIOVENTRICULAR BLOCK [None]
  - APPLICATION SITE PRURITUS [None]
